FAERS Safety Report 23284487 (Version 5)
Quarter: 2024Q3

REPORT INFORMATION
  Report Type: Report from Study
  Country: BR (occurrence: BR)
  Receive Date: 20231211
  Receipt Date: 20240809
  Transmission Date: 20241017
  Serious: Yes (Death, Hospitalization, Other)
  Sender: NOVARTIS
  Company Number: BR-002147023-NVSC2023BR004601

PATIENT
  Age: 57 Year
  Sex: Female
  Weight: 55 kg

DRUGS (4)
  1. KISQALI [Suspect]
     Active Substance: RIBOCICLIB
     Indication: Breast cancer metastatic
     Dosage: 3 DOSAGE FORM (THIRTY MINUTES AFTER EATING)
     Route: 065
     Dates: start: 20221221, end: 20230110
  2. KISQALI [Suspect]
     Active Substance: RIBOCICLIB
     Dosage: UNK
     Route: 065
     Dates: start: 20230118
  3. KISQALI [Suspect]
     Active Substance: RIBOCICLIB
     Dosage: UNK
     Route: 065
  4. KISQALI [Suspect]
     Active Substance: RIBOCICLIB
     Dosage: 3 DOSAGE FORM AFTERNOON, LUNCH, LETS THE STOMACH EMPTY AND SHE TAKES IT
     Route: 065
     Dates: start: 20231115

REACTIONS (21)
  - Oncologic complication [Fatal]
  - Respiratory failure [Fatal]
  - Breast cancer metastatic [Fatal]
  - Pleural effusion [Unknown]
  - Decreased appetite [Not Recovered/Not Resolved]
  - Gait disturbance [Recovering/Resolving]
  - Skin exfoliation [Recovering/Resolving]
  - Skin disorder [Recovering/Resolving]
  - Arthralgia [Recovered/Resolved]
  - Vomiting [Recovered/Resolved]
  - Diarrhoea [Recovering/Resolving]
  - Speech disorder [Unknown]
  - Malaise [Unknown]
  - Asthenia [Unknown]
  - Tremor [Unknown]
  - Eating disorder [Unknown]
  - Eye disorder [Unknown]
  - Feeding disorder [Unknown]
  - Nausea [Unknown]
  - Vomiting [Unknown]
  - Therapeutic response unexpected [Unknown]

NARRATIVE: CASE EVENT DATE: 20221201
